FAERS Safety Report 6390556-4 (Version None)
Quarter: 2009Q4

REPORT INFORMATION
  Report Type: 
  Country: None (occurrence: None)
  Receive Date: 20091005
  Receipt Date: 20091005
  Transmission Date: 20100525
  Serious: Yes (Hospitalization)
  Sender: FDA-Public Use
  Company Number: None

PATIENT
  Sex: Male
  Weight: 81.7 kg

DRUGS (2)
  1. AZACITIDINE 75MG/M2 [Suspect]
     Indication: ACUTE MYELOID LEUKAEMIA
     Dosage: 75MG/M2 QD S/C
     Route: 058
     Dates: start: 20090904, end: 20090910
  2. LENALIDOMIDE 5 MG [Suspect]

REACTIONS (2)
  - BACK PAIN [None]
  - PNEUMONIA [None]
